FAERS Safety Report 5981258-4 (Version None)
Quarter: 2008Q4

REPORT INFORMATION
  Report Type: 
  Country: None (occurrence: None)
  Receive Date: 20081202
  Receipt Date: 20081202
  Transmission Date: 20090506
  Serious: Yes (Death)
  Sender: FDA-Public Use
  Company Number: None

PATIENT
  Age: 78 Year
  Sex: Male
  Weight: 65.7716 kg

DRUGS (1)
  1. HALDOL [Suspect]
     Indication: HALLUCINATION
     Dates: start: 20070301, end: 20070327

REACTIONS (2)
  - PNEUMONIA [None]
  - PULMONARY OEDEMA [None]
